FAERS Safety Report 9462115 (Version 1)
Quarter: 2013Q3

REPORT INFORMATION
  Report Type: Spontaneous
  Country: US (occurrence: None)
  Receive Date: 20130815
  Receipt Date: 20130815
  Transmission Date: 20140515
  Serious: Yes (Hospitalization)
  Sender: FDA-Public Use
  Company Number: None

PATIENT
  Age: 76 Year
  Sex: Male
  Weight: 86 kg

DRUGS (10)
  1. PRADAXA [Suspect]
     Indication: ATRIAL FIBRILLATION
     Route: 048
  2. FLOMAX [Concomitant]
  3. LIPITOR [Concomitant]
  4. FISH OIL [Concomitant]
  5. HCTZ/SPIRONOLACTONE [Concomitant]
  6. NIACIN [Concomitant]
  7. VESICARE [Concomitant]
  8. COLACE [Concomitant]
  9. LOSARTAN [Concomitant]
  10. CITALOPRAM [Concomitant]

REACTIONS (4)
  - Barrett^s oesophagus [None]
  - Hiatus hernia [None]
  - Duodenitis haemorrhagic [None]
  - Gastric haemorrhage [None]
